FAERS Safety Report 11509447 (Version 1)
Quarter: 2015Q3

REPORT INFORMATION
  Report Type: Report from Study
  Country: PK (occurrence: PK)
  Receive Date: 20150915
  Receipt Date: 20150915
  Transmission Date: 20151125
  Serious: Yes (Hospitalization, Other)
  Sender: FDA-Public Use
  Company Number: PK-INCYTE CORPORATION-2015IN004471

PATIENT
  Age: 40 Year
  Sex: Male
  Weight: 67 kg

DRUGS (2)
  1. JAKAFI [Suspect]
     Active Substance: RUXOLITINIB
     Dosage: 20 MG, UNK
     Route: 048
     Dates: start: 20150812, end: 20150825
  2. JAKAFI [Suspect]
     Active Substance: RUXOLITINIB
     Indication: ESSENTIAL THROMBOCYTHAEMIA
     Dosage: 15 MG, UNK
     Route: 048
     Dates: start: 20150527, end: 20150703

REACTIONS (4)
  - Haemoglobin decreased [Unknown]
  - Platelet count increased [Unknown]
  - Total lung capacity increased [Unknown]
  - Abdominal pain [Recovering/Resolving]

NARRATIVE: CASE EVENT DATE: 20150825
